FAERS Safety Report 9184909 (Version 4)
Quarter: 2013Q3

REPORT INFORMATION
  Report Type: Spontaneous
  Country: US (occurrence: US)
  Receive Date: 20130325
  Receipt Date: 20130829
  Transmission Date: 20140515
  Serious: Yes (Hospitalization, Other)
  Sender: FDA-Public Use
  Company Number: US-B.I. PHARMACEUTICALS,INC./RIDGEFIELD-2013-BI-07012BP

PATIENT
  Age: 77 Year
  Sex: Male
  Weight: 106.59 kg

DRUGS (11)
  1. PRADAXA [Suspect]
     Indication: ATRIAL FIBRILLATION
     Dates: start: 20110313, end: 20110317
  2. METFORMIN [Concomitant]
     Dates: start: 2007, end: 201103
  3. VITAMIN C [Concomitant]
  4. BETA CAROTENE [Concomitant]
  5. VITAMIN D3 [Concomitant]
  6. OMEGA 3 [Concomitant]
  7. FOLIC ACID [Concomitant]
  8. CINNAMON BARK [Concomitant]
  9. VITAMIN B12 [Concomitant]
  10. ALPHA LIPOIC ACID [Concomitant]
  11. TOPROL [Concomitant]

REACTIONS (2)
  - Lower gastrointestinal haemorrhage [Unknown]
  - Fall [Unknown]
